FAERS Safety Report 7308604-3 (Version None)
Quarter: 2011Q1

REPORT INFORMATION
  Report Type: 
  Country: None (occurrence: None)
  Receive Date: 20110211
  Receipt Date: 20110131
  Transmission Date: 20110831
  Serious: Yes (Death, Other)
  Sender: FDA-Public Use
  Company Number: 2007-03556

PATIENT
  Age: 72 Year
  Sex: Male
  Weight: 91 kg

DRUGS (16)
  1. ZEFFIX (LAMIVUDINE) [Concomitant]
  2. MAXIPIME [Concomitant]
  3. DEXAMETHASONE SODIUM PHOSPHATE [Concomitant]
  4. PANTOSIN (PANTETHINE) [Concomitant]
  5. TAKEPRON (LANSOPRAZOLE) [Concomitant]
  6. WARFARIN POTASSIUM (WARFARIN POTASSIUM) [Concomitant]
  7. HYDROCORTISONE SODIUM SUCCINATE [Concomitant]
  8. VELCADE [Suspect]
     Indication: MULTIPLE MYELOMA
     Dosage: 1.60 MG, INTRAVENOUS
     Route: 042
     Dates: start: 20070522, end: 20070911
  9. MAGNESIUM OXIDE (MAGNESIUM OXIDE) [Concomitant]
  10. ZOVIRAX [Concomitant]
  11. GLYSENNID [Concomitant]
  12. KYTRIL [Concomitant]
  13. DIFLUCAN [Concomitant]
  14. COTRIM [Concomitant]
  15. ALENDRONATE SODIUM (ALENDRONATE SODIUM) [Concomitant]
  16. ITRACONAZOLE [Concomitant]

REACTIONS (9)
  - NEUROPATHY PERIPHERAL [None]
  - MULTIPLE MYELOMA [None]
  - NEOPLASM PROGRESSION [None]
  - ASTHMA [None]
  - HERPES ZOSTER [None]
  - LIVER DISORDER [None]
  - DISEASE PROGRESSION [None]
  - PLATELET COUNT DECREASED [None]
  - LYMPHOCYTE COUNT DECREASED [None]
